FAERS Safety Report 4840937-2 (Version None)
Quarter: 2005Q4

REPORT INFORMATION
  Report Type: 
  Country: None (occurrence: None)
  Receive Date: 20051130
  Receipt Date: 20050706
  Transmission Date: 20060501
  Serious: No
  Sender: FDA-Public Use
  Company Number: US-BRISTOL-MYERS SQUIBB COMPANY-13027719

PATIENT
  Sex: Female
  Weight: 62 kg

DRUGS (3)
  1. ABILIFY [Suspect]
     Indication: ABNORMAL BEHAVIOUR
     Dosage: DOSAGE INCREASED TO 5MG DAILY ON 05-JUL-2005
     Route: 048
     Dates: start: 20050607, end: 20050705
  2. ALLEGRA [Concomitant]
  3. SINGULAIR [Concomitant]

REACTIONS (1)
  - METRORRHAGIA [None]
